FAERS Safety Report 13564203 (Version 1)
Quarter: 2017Q2

REPORT INFORMATION
  Report Type: Spontaneous
  Country: CO (occurrence: CO)
  Receive Date: 20170519
  Receipt Date: 20170519
  Transmission Date: 20170830
  Serious: Yes (Death, Other)
  Sender: FDA-Public Use
  Company Number: CO-FRESENIUS KABI-FK201704268

PATIENT
  Age: 2 Year
  Sex: Male

DRUGS (2)
  1. CISPLATIN. [Concomitant]
     Active Substance: CISPLATIN
     Indication: HEPATOBLASTOMA
  2. DOXORUBICIN (MANUFACTURER UNKNOWN) [Suspect]
     Active Substance: DOXORUBICIN
     Indication: HEPATOBLASTOMA
     Route: 013

REACTIONS (5)
  - Epistaxis [Unknown]
  - Pulmonary alveolar haemorrhage [Fatal]
  - Off label use [Unknown]
  - Coagulopathy [Unknown]
  - Hepatic failure [Fatal]
